FAERS Safety Report 9293786 (Version 1)
Quarter: 2013Q2

REPORT INFORMATION
  Report Type: Spontaneous
  Country: CH (occurrence: CH)
  Receive Date: 20130516
  Receipt Date: 20130516
  Transmission Date: 20140414
  Serious: Yes (Other)
  Sender: FDA-Public Use
  Company Number: PHHY2013CH048166

PATIENT
  Age: 69 Year
  Sex: Female

DRUGS (1)
  1. ACETYLSALICYLIC ACID [Suspect]
     Indication: PROPHYLAXIS
     Dosage: UNK UKN, UNK

REACTIONS (4)
  - Sensorimotor disorder [Unknown]
  - Cerebrovascular accident [Unknown]
  - Cerebral ischaemia [Unknown]
  - Drug ineffective [Unknown]
